FAERS Safety Report 7704285-5 (Version None)
Quarter: 2011Q3

REPORT INFORMATION
  Report Type: 
  Country: None (occurrence: None)
  Receive Date: 20110823
  Receipt Date: 20110811
  Transmission Date: 20111222
  Serious: Yes (Disabling)
  Sender: FDA-Public Use
  Company Number: PHHY2011CA69993

PATIENT
  Sex: Female

DRUGS (1)
  1. ZOLEDRONOC ACID [Suspect]
     Indication: OSTEOPOROSIS
     Dosage: 5 MG, UNK
     Route: 042
     Dates: start: 20100818

REACTIONS (7)
  - LOSS OF CONSCIOUSNESS [None]
  - SPEECH DISORDER [None]
  - NAUSEA [None]
  - VISION BLURRED [None]
  - DIZZINESS [None]
  - DYSPNOEA [None]
  - FATIGUE [None]
